FAERS Safety Report 23328493 (Version 1)
Quarter: 2023Q4

REPORT INFORMATION
  Report Type: Spontaneous
  Country: US (occurrence: US)
  Receive Date: 20231221
  Receipt Date: 20231221
  Transmission Date: 20240110
  Serious: Yes (Death)
  Sender: FDA-Public Use
  Company Number: US-PRINSTON PHARMACEUTICAL INC.-2023PRN00629

PATIENT
  Age: 61 Year

DRUGS (4)
  1. DONEPEZIL [Suspect]
     Active Substance: DONEPEZIL
  2. LEVETIRACETAM [Suspect]
     Active Substance: LEVETIRACETAM
  3. GABAPENTIN [Suspect]
     Active Substance: GABAPENTIN
  4. TRAZODONE [Suspect]
     Active Substance: TRAZODONE HYDROCHLORIDE

REACTIONS (1)
  - Overdose [Fatal]
